FAERS Safety Report 4314067-2 (Version None)
Quarter: 2004Q1

REPORT INFORMATION
  Report Type: 
  Country: None (occurrence: None)
  Receive Date: 20040305
  Receipt Date: 20031202
  Transmission Date: 20041129
  Serious: Yes (Hospitalization)
  Sender: FDA-Public Use
  Company Number: 2003UW15938

PATIENT
  Age: 33 Year
  Sex: Male
  Weight: 102.5129 kg

DRUGS (6)
  1. CRESTOR [Suspect]
     Indication: HYPERLIPIDAEMIA
     Dosage: 10 MG PO
     Route: 048
     Dates: start: 20031119
  2. TESTOSTERONE [Suspect]
     Dosage: OVER THE COUNTER
  3. CREATININE (OTC) [Suspect]
     Dosage: OVER THE COUNTER
  4. NEXIUM [Concomitant]
  5. LIPITOR [Concomitant]
  6. ZOCOR [Concomitant]

REACTIONS (1)
  - RHABDOMYOLYSIS [None]
